FAERS Safety Report 23508432 (Version 1)
Quarter: 2024Q1

REPORT INFORMATION
  Report Type: Spontaneous
  Country: US (occurrence: US)
  Receive Date: 20240209
  Receipt Date: 20240209
  Transmission Date: 20240410
  Serious: No
  Sender: FDA-Public Use
  Company Number: US-SANOFI-01930856

PATIENT
  Age: 80 Year
  Sex: Female

DRUGS (2)
  1. LOVENOX [Suspect]
     Active Substance: ENOXAPARIN SODIUM
     Indication: Lupus anticoagulant hypoprothrombinaemia syndrome
     Dosage: 90 IU, BID
     Route: 058
     Dates: start: 20220823
  2. LOVENOX [Suspect]
     Active Substance: ENOXAPARIN SODIUM
     Dosage: UNK UNK, TOTAL

REACTIONS (1)
  - Product use in unapproved indication [Unknown]
